FAERS Safety Report 5963372-2 (Version None)
Quarter: 2008Q4

REPORT INFORMATION
  Report Type: 
  Country: None (occurrence: None)
  Receive Date: 20081124
  Receipt Date: 20081118
  Transmission Date: 20090506
  Serious: Yes (Hospitalization)
  Sender: FDA-Public Use
  Company Number: B0539553A

PATIENT
  Age: 34 Year
  Sex: Male

DRUGS (3)
  1. ARIXTRA [Suspect]
     Indication: THROMBOSIS PROPHYLAXIS
     Route: 058
     Dates: start: 20080909, end: 20080919
  2. DI ANTALVIC [Suspect]
     Route: 065
     Dates: start: 20080909, end: 20080911
  3. KEFZOL [Suspect]
     Route: 065
     Dates: start: 20080909, end: 20080909

REACTIONS (7)
  - ARTHRALGIA [None]
  - HAEMATOMA [None]
  - INFLAMMATION [None]
  - PYREXIA [None]
  - RASH [None]
  - RASH ERYTHEMATOUS [None]
  - URTICARIA [None]
